FAERS Safety Report 9286040 (Version 3)
Quarter: 2013Q2

REPORT INFORMATION
  Report Type: Spontaneous
  Country: JP (occurrence: JP)
  Receive Date: 20130513
  Receipt Date: 20130603
  Transmission Date: 20140414
  Serious: Yes (Life-Threatening)
  Sender: FDA-Public Use
  Company Number: JP-ASTRAZENECA-2013SE29063

PATIENT
  Age: 76 Year
  Sex: Male
  Weight: 55 kg

DRUGS (8)
  1. BONALON [Suspect]
     Indication: OSTEOPOROSIS PROPHYLAXIS
     Dosage: 35 MG EVERY WEDNESDAY, UPON WAKING UP
     Route: 048
     Dates: start: 201301, end: 20130417
  2. NEXIUM [Suspect]
     Indication: PROPHYLAXIS AGAINST GASTROINTESTINAL ULCER
     Dosage: 20 MG AFTER BREAKFAST
     Route: 048
     Dates: start: 20130408, end: 20130419
  3. PREDNISOLONE [Concomitant]
     Indication: SPINAL CORD DISORDER
     Dosage: 20 MG AFTER BREAKFAST AND LUNCH
     Route: 048
     Dates: start: 201301
  4. JANUVIA [Concomitant]
     Indication: DIABETES MELLITUS
     Dosage: 50 MG AFTER BREAKFAST
     Route: 048
     Dates: start: 201301
  5. PURSENNID [Concomitant]
     Indication: DYSCHEZIA
     Dosage: 24 MG AFTER EVENING MEAL
     Route: 048
     Dates: start: 201301
  6. VOLTAREN [Concomitant]
     Indication: HYPOAESTHESIA
     Route: 054
     Dates: start: 201301
  7. EBRANTIL [Concomitant]
     Indication: NEUROGENIC BLADDER
     Dosage: 15 MG AFTER BREAKFAST AND EVENING MEAL
     Route: 048
     Dates: start: 201301
  8. BESACOLIN [Concomitant]
     Indication: NEUROGENIC BLADDER
     Dosage: 15 MG AFTER BREAKFAST AND EVENING MEAL
     Route: 048
     Dates: start: 201301

REACTIONS (1)
  - Febrile neutropenia [Recovered/Resolved]
